FAERS Safety Report 8334025-0 (Version None)
Quarter: 2012Q2

REPORT INFORMATION
  Report Type: 
  Country: None (occurrence: None)
  Receive Date: 20120503
  Receipt Date: 20120424
  Transmission Date: 20120825
  Serious: Yes (Hospitalization, Other)
  Sender: FDA-Public Use
  Company Number: US-ABBOTT-11P-163-0836672-00

PATIENT
  Sex: Female
  Weight: 90.8 kg

DRUGS (3)
  1. HUMIRA [Suspect]
     Dates: end: 20110501
  2. UNKNOWN BLOOD PRESSURE MEDICATION [Concomitant]
     Indication: BLOOD PRESSURE
  3. HUMIRA [Suspect]
     Indication: PSORIASIS
     Route: 058
     Dates: start: 20100902, end: 20100902

REACTIONS (7)
  - VISION BLURRED [None]
  - VISUAL ACUITY REDUCED [None]
  - BLINDNESS [None]
  - PAPILLOEDEMA [None]
  - BLINDNESS UNILATERAL [None]
  - OPTIC NEURITIS [None]
  - NERVOUS SYSTEM DISORDER [None]
